FAERS Safety Report 9246888 (Version 1)
Quarter: 2013Q2

REPORT INFORMATION
  Report Type: Report from Study
  Country: US (occurrence: US)
  Receive Date: 20130422
  Receipt Date: 20130422
  Transmission Date: 20140414
  Serious: No
  Sender: FDA-Public Use
  Company Number: US-ABBOTT-13P-163-1067225-00

PATIENT
  Age: 9 Year
  Sex: Female
  Weight: 40.86 kg

DRUGS (2)
  1. LUPRON DEPOT-PED [Suspect]
     Indication: PRECOCIOUS PUBERTY
     Route: 030
  2. LUPRON DEPOT-PED [Suspect]
     Indication: PRECOCIOUS PUBERTY
     Route: 030

REACTIONS (5)
  - Hormone level abnormal [Not Recovered/Not Resolved]
  - Growth accelerated [Unknown]
  - Hair growth abnormal [Unknown]
  - Breast disorder [Unknown]
  - Anxiety [Recovering/Resolving]
